FAERS Safety Report 6225546-5 (Version None)
Quarter: 2009Q2

REPORT INFORMATION
  Report Type: 
  Country: None (occurrence: None)
  Receive Date: 20090612
  Receipt Date: 20090508
  Transmission Date: 20091009
  Serious: No
  Sender: FDA-Public Use
  Company Number: US-ABBOTT-09P-163-0569549-00

PATIENT
  Sex: Female
  Weight: 90.8 kg

DRUGS (6)
  1. HUMIRA [Suspect]
     Indication: DRUG USE FOR UNKNOWN INDICATION
     Dates: start: 20090410, end: 20090417
  2. VALTREX [Concomitant]
     Indication: HERPES VIRUS INFECTION
  3. LEVOTHYROXINE [Concomitant]
     Indication: DRUG USE FOR UNKNOWN INDICATION
     Dosage: 1/2 TAB
  4. SEASONIQUE [Concomitant]
     Indication: DRUG USE FOR UNKNOWN INDICATION
     Dosage: BC 3 MONTH PACK
  5. DARVOCET [Concomitant]
     Indication: HEADACHE
  6. MAXALT [Concomitant]
     Indication: DRUG USE FOR UNKNOWN INDICATION

REACTIONS (5)
  - AGGRESSION [None]
  - ANGER [None]
  - NASOPHARYNGITIS [None]
  - PANIC ATTACK [None]
  - PSYCHOTIC DISORDER [None]
